FAERS Safety Report 5382304-1 (Version None)
Quarter: 2007Q3

REPORT INFORMATION
  Report Type: 
  Country: None (occurrence: None)
  Receive Date: 20070709
  Receipt Date: 20070627
  Transmission Date: 20080115
  Serious: Yes (Other)
  Sender: FDA-Public Use
  Company Number: US-PFIZER INC-2007029520

PATIENT
  Sex: Female
  Weight: 68 kg

DRUGS (10)
  1. CHANTIX [Suspect]
     Indication: SMOKING CESSATION THERAPY
     Route: 048
     Dates: start: 20070331, end: 20070404
  2. CHANTIX [Suspect]
     Indication: TOBACCO ABUSE
  3. ALBUTEROL [Concomitant]
  4. RHINOCORT [Concomitant]
  5. PATANOL [Concomitant]
  6. ALLEGRA [Concomitant]
  7. ADVAIR DISKUS 100/50 [Concomitant]
  8. SPIRIVA [Concomitant]
  9. ALLEGRA D 24 HOUR [Concomitant]
  10. COMBIVENT [Concomitant]

REACTIONS (4)
  - HYPERSENSITIVITY [None]
  - PRURITUS [None]
  - RASH [None]
  - SKIN LESION [None]
